FAERS Safety Report 16946275 (Version 2)
Quarter: 2020Q1

REPORT INFORMATION
  Report Type: Spontaneous
  Country: US (occurrence: US)
  Receive Date: 20191022
  Receipt Date: 20200130
  Transmission Date: 20200409
  Serious: No
  Sender: FDA-Public Use
  Company Number: US-SA-2019SA292383

PATIENT
  Age: 18 Year
  Sex: Female
  Weight: 52.61 kg

DRUGS (2)
  1. DUPIXENT [Suspect]
     Active Substance: DUPILUMAB
     Indication: DERMATITIS ATOPIC
     Dosage: 300 MG, QOW
     Route: 058
     Dates: start: 201906
  2. VARICELLA VACCINE, LIVE [Concomitant]
     Active Substance: VARICELLA-ZOSTER VIRUS STRAIN OKA/MERCK LIVE ANTIGEN

REACTIONS (4)
  - Ocular hyperaemia [Recovered/Resolved]
  - Sinusitis [Unknown]
  - Ear infection [Unknown]
  - Contraindicated product administered [Unknown]
